FAERS Safety Report 7817373-X (Version None)
Quarter: 2011Q4

REPORT INFORMATION
  Report Type: 
  Country: None (occurrence: None)
  Receive Date: 20111017
  Receipt Date: 20111012
  Transmission Date: 20120403
  Serious: Yes (Other)
  Sender: FDA-Public Use
  Company Number: US-PURDUE-USA-2011-0076124

PATIENT
  Sex: Female

DRUGS (2)
  1. OXYCONTIN [Suspect]
     Indication: PRODUCT USED FOR UNKNOWN INDICATION
     Dosage: 80 MG, BID
  2. OXYCONTIN [Suspect]
     Dosage: 40 MG, BID

REACTIONS (3)
  - FEELING OF BODY TEMPERATURE CHANGE [None]
  - PNEUMONIA [None]
  - PYREXIA [None]
